FAERS Safety Report 4969182-7 (Version None)
Quarter: 2006Q2

REPORT INFORMATION
  Report Type: 
  Country: None (occurrence: None)
  Receive Date: 20060411
  Receipt Date: 20051215
  Transmission Date: 20061013
  Serious: Yes (Other)
  Sender: FDA-Public Use
  Company Number: US-BRISTOL-MYERS SQUIBB COMPANY-13226154

PATIENT
  Age: 52 Year
  Sex: Male

DRUGS (7)
  1. PARAPLATIN [Suspect]
     Dates: start: 20051206
  2. DECADRON [Concomitant]
     Indication: PREMEDICATION
     Route: 042
  3. BENADRYL [Concomitant]
     Indication: PREMEDICATION
     Route: 042
  4. DEXAMETHASONE [Concomitant]
  5. PRILOSEC [Concomitant]
  6. MORPHINE [Concomitant]
  7. OXYCODONE [Concomitant]

REACTIONS (1)
  - HYPOTENSION [None]
